FAERS Safety Report 5379893-X (Version None)
Quarter: 2007Q3

REPORT INFORMATION
  Report Type: 
  Country: None (occurrence: None)
  Receive Date: 20070703
  Receipt Date: 20070622
  Transmission Date: 20080115
  Serious: Yes (Other)
  Sender: FDA-Public Use
  Company Number: GXKR2007GB05395

PATIENT
  Age: 64 Year
  Sex: Female
  Weight: 79 kg

DRUGS (7)
  1. LISINOPRIL [Suspect]
     Dosage: 2.5 MG
     Dates: start: 20070117, end: 20070425
  2. ALENDRONATE SODIUM [Concomitant]
  3. CO-PROXAMOL (DEXTROPROPOXYPHENE HYDROCHLORIDE, PARACETAMOL) [Concomitant]
  4. GAVISCON [Concomitant]
  5. KETOPROFEN [Concomitant]
  6. OMEPRAZOLE [Concomitant]
  7. PREDNISOLONE [Concomitant]

REACTIONS (1)
  - CONDITION AGGRAVATED [None]
